FAERS Safety Report 9003579 (Version 1)
Quarter: 2013Q1

REPORT INFORMATION
  Report Type: Spontaneous
  Country: US (occurrence: US)
  Receive Date: 20130108
  Receipt Date: 20130108
  Transmission Date: 20140127
  Serious: Yes (Hospitalization)
  Sender: FDA-Public Use
  Company Number: US-MERCK-1301USA001447

PATIENT
  Sex: Male

DRUGS (5)
  1. MONTELUKAST SODIUM [Suspect]
     Indication: ALLERGIC RESPIRATORY DISEASE
     Route: 048
  2. FLUTICASONE PROPIONATE [Suspect]
  3. ADVAIR [Suspect]
  4. PREDNISONE [Suspect]
  5. ASPIRIN [Suspect]

REACTIONS (6)
  - Respiratory disorder [Unknown]
  - Sinusitis [Unknown]
  - Nasal polyps [Unknown]
  - Disease recurrence [Unknown]
  - Chronic sinusitis [Unknown]
  - Asthma [Unknown]
